FAERS Safety Report 15132627 (Version 1)
Quarter: 2018Q3

REPORT INFORMATION
  Report Type: Spontaneous
  Country: PT (occurrence: PT)
  Receive Date: 20180712
  Receipt Date: 20180712
  Transmission Date: 20181010
  Serious: Yes (Other)
  Sender: FDA-Public Use
  Company Number: PT-AUROBINDO-AUR-APL-2018-034789

PATIENT
  Age: 42 Year

DRUGS (1)
  1. METRONIDAZOLE. [Suspect]
     Active Substance: METRONIDAZOLE
     Indication: HELICOBACTER TEST POSITIVE
     Dosage: 1000 MILLIGRAM, DAILY (500 MG BID)
     Route: 048
     Dates: start: 20180617

REACTIONS (1)
  - Migraine with aura [Recovering/Resolving]

NARRATIVE: CASE EVENT DATE: 20180620
